FAERS Safety Report 5121601-1 (Version None)
Quarter: 2006Q4

REPORT INFORMATION
  Report Type: 
  Country: None (occurrence: None)
  Receive Date: 20061006
  Receipt Date: 20061003
  Transmission Date: 20070319
  Serious: Yes (Death, Other)
  Sender: FDA-Public Use
  Company Number: ZA-NOVOPROD-257465

PATIENT
  Age: 86 Year
  Sex: Female
  Weight: 80 kg

DRUGS (3)
  1. NOVOMIX 30 [Suspect]
     Indication: DIABETES MELLITUS
     Dosage: 10 U, QD
     Route: 058
     Dates: start: 20060820, end: 20060926
  2. AMARYL [Concomitant]
     Dosage: 4 MG, QD
  3. ADALAT [Concomitant]

REACTIONS (5)
  - DRUG HYPERSENSITIVITY [None]
  - FACE OEDEMA [None]
  - HYPERSENSITIVITY [None]
  - MULTI-ORGAN FAILURE [None]
  - OEDEMA PERIPHERAL [None]
